FAERS Safety Report 7466184-6 (Version None)
Quarter: 2011Q2

REPORT INFORMATION
  Report Type: 
  Country: None (occurrence: None)
  Receive Date: 20110509
  Receipt Date: 20110425
  Transmission Date: 20111010
  Serious: Yes (Hospitalization, Other)
  Sender: FDA-Public Use
  Company Number: US-ELI_LILLY_AND_COMPANY-US201104007374

PATIENT
  Sex: Male

DRUGS (4)
  1. RISPERDAL [Concomitant]
  2. ZYPREXA ZYDIS [Suspect]
     Indication: SCHIZOPHRENIA
     Dosage: 20 MG, QD
     Dates: start: 20011101
  3. INSULINE [Concomitant]
  4. ZYPREXA [Suspect]
     Indication: SCHIZOPHRENIA
     Dosage: 20 MG, QD
     Dates: start: 20011101

REACTIONS (19)
  - POLYURIA [None]
  - HYPERGLYCAEMIA [None]
  - PSYCHOMOTOR HYPERACTIVITY [None]
  - MULTI-ORGAN DISORDER [None]
  - WEIGHT INCREASED [None]
  - DIABETIC COMPLICATION [None]
  - ABDOMINAL PAIN [None]
  - HERNIA [None]
  - ASTHENIA [None]
  - DIABETES MELLITUS [None]
  - WEIGHT DECREASED [None]
  - CARDIAC DISORDER [None]
  - POLYDIPSIA [None]
  - BLOOD PRESSURE INCREASED [None]
  - MYOCARDIAL INFARCTION [None]
  - KETOACIDOSIS [None]
  - BIPOLAR DISORDER [None]
  - HYPERPHAGIA [None]
  - CHEST PAIN [None]
